FAERS Safety Report 4798157-6 (Version None)
Quarter: 2005Q4

REPORT INFORMATION
  Report Type: 
  Country: None (occurrence: None)
  Receive Date: 20051011
  Receipt Date: 20051011
  Transmission Date: 20060501
  Serious: Yes (Other)
  Sender: FDA-Public Use
  Company Number: None

PATIENT
  Age: 22 Year
  Sex: Female
  Weight: 59 kg

DRUGS (1)
  1. PENICILLIN [Suspect]
     Indication: TOOTH EXTRACTION
     Dosage: 2G, 500MGQID, ORAL
     Route: 048
     Dates: start: 20050705, end: 20050712

REACTIONS (1)
  - RASH [None]
